FAERS Safety Report 23168045 (Version 4)
Quarter: 2023Q4

REPORT INFORMATION
  Report Type: Spontaneous
  Country: US (occurrence: US)
  Receive Date: 20231109
  Receipt Date: 20231114
  Transmission Date: 20240110
  Serious: Yes (Death, Hospitalization, Other)
  Sender: FDA-Public Use
  Company Number: US-SANDOZ-SDZ2023US050735

PATIENT
  Age: 65 Year
  Sex: Female

DRUGS (3)
  1. TREPROSTINIL [Suspect]
     Active Substance: TREPROSTINIL
     Dosage: 156 NG/KG/MIN, CONT (STRENGTH: 5MG.ML)
     Route: 042
     Dates: start: 202304
  2. TREPROSTINIL [Suspect]
     Active Substance: TREPROSTINIL
     Dosage: 166 NG/KG/MIN, CONT (STRENGTH: 5MG.ML)
     Route: 042
     Dates: start: 202304
  3. TREPROSTINIL [Suspect]
     Active Substance: TREPROSTINIL
     Indication: Pulmonary arterial hypertension
     Dosage: 168 NG/KG/MIN, CONT (STRENGTH: 5MG.ML)
     Route: 042
     Dates: start: 202304

REACTIONS (14)
  - Death [Fatal]
  - Tachycardia [Unknown]
  - Ascites [Unknown]
  - Joint swelling [Unknown]
  - Weight increased [Unknown]
  - Oedema peripheral [Unknown]
  - Diarrhoea [Unknown]
  - Pain in extremity [Unknown]
  - Pain in jaw [Unknown]
  - Dyspnoea [Unknown]
  - Cough [Unknown]
  - Dizziness [Unknown]
  - Fatigue [Unknown]
  - Device issue [Unknown]

NARRATIVE: CASE EVENT DATE: 20230722
